FAERS Safety Report 15371533 (Version 1)
Quarter: 2018Q3

REPORT INFORMATION
  Report Type: Spontaneous
  Country: GR (occurrence: GR)
  Receive Date: 20180911
  Receipt Date: 20180911
  Transmission Date: 20181010
  Serious: Yes (Other)
  Sender: FDA-Public Use
  Company Number: PHHY2018GR089232

PATIENT
  Age: 63 Year
  Sex: Female

DRUGS (1)
  1. DEFEROXAMINE [Suspect]
     Active Substance: DEFEROXAMINE\DEFEROXAMINE MESYLATE
     Indication: THALASSAEMIA SICKLE CELL
     Route: 058

REACTIONS (2)
  - Maculopathy [Unknown]
  - Vision blurred [Unknown]
